FAERS Safety Report 4933463-3 (Version None)
Quarter: 2006Q1

REPORT INFORMATION
  Report Type: 
  Country: None (occurrence: None)
  Receive Date: 20060306
  Receipt Date: 20050616
  Transmission Date: 20060701
  Serious: Yes (Hospitalization)
  Sender: FDA-Public Use
  Company Number: US-MERCK-0506USA02694

PATIENT
  Age: 58 Year
  Sex: Female
  Weight: 102 kg

DRUGS (1)
  1. VIOXX [Suspect]
     Indication: ARTHRALGIA
     Route: 048
     Dates: start: 19990101, end: 20010801

REACTIONS (24)
  - ABDOMINAL DISCOMFORT [None]
  - ANAEMIA [None]
  - ARTHROPATHY [None]
  - BACK PAIN [None]
  - CHEST PAIN [None]
  - CHOLECYSTECTOMY [None]
  - CORONARY ARTERY DISEASE [None]
  - CORONARY ARTERY STENOSIS [None]
  - DYSLIPIDAEMIA [None]
  - GALLBLADDER DISORDER [None]
  - HEART RATE DECREASED [None]
  - KNEE OPERATION [None]
  - MUSCULOSKELETAL CHEST PAIN [None]
  - MYOCARDIAL INFARCTION [None]
  - NAUSEA [None]
  - OSTEOARTHRITIS [None]
  - OVERDOSE [None]
  - PANIC DISORDER [None]
  - PLEURAL EFFUSION [None]
  - SLEEP APNOEA SYNDROME [None]
  - SOMNOLENCE [None]
  - SPINAL OSTEOARTHRITIS [None]
  - SYNOVIAL CYST [None]
  - VENTRICULAR HYPOKINESIA [None]
